FAERS Safety Report 5963482-X (Version None)
Quarter: 2008Q4

REPORT INFORMATION
  Report Type: 
  Country: None (occurrence: None)
  Receive Date: 20081121
  Receipt Date: 20081121
  Transmission Date: 20090506
  Serious: Yes (Hospitalization)
  Sender: FDA-Public Use
  Company Number: None

PATIENT
  Age: 52 Year
  Sex: Male
  Weight: 94.8 kg

DRUGS (5)
  1. AMIODARONE HYDROCHLORIDE [Suspect]
     Indication: ATRIAL FIBRILLATION
     Dosage: 200MG, DAILY, PO
     Route: 048
     Dates: start: 20060101, end: 20080731
  2. METOPROLOL TARTRATE [Concomitant]
  3. NEXIUM [Concomitant]
  4. FAMOTIDINE [Concomitant]
  5. FOSRENAL [Concomitant]

REACTIONS (13)
  - BLOOD PRESSURE INCREASED [None]
  - BLOOD THYROID STIMULATING HORMONE DECREASED [None]
  - CHEST DISCOMFORT [None]
  - COUGH [None]
  - DIALYSIS [None]
  - DYSPNOEA [None]
  - DYSPNOEA EXERTIONAL [None]
  - HEART RATE INCREASED [None]
  - PULMONARY FUNCTION TEST ABNORMAL [None]
  - RESPIRATORY RATE INCREASED [None]
  - THYROXINE FREE INCREASED [None]
  - THYROXINE INCREASED [None]
  - TRI-IODOTHYRONINE UPTAKE DECREASED [None]
